FAERS Safety Report 4283085-5 (Version None)
Quarter: 2004Q1

REPORT INFORMATION
  Report Type: 
  Country: None (occurrence: None)
  Receive Date: 20040129
  Receipt Date: 20040115
  Transmission Date: 20041129
  Serious: Yes (Disabling, Other)
  Sender: FDA-Public Use
  Company Number: 2004004001

PATIENT
  Age: 54 Year
  Sex: Male
  Weight: 77.1115 kg

DRUGS (16)
  1. ZOLOFT [Suspect]
     Indication: ANXIETY
     Dosage: 50 MG (DAILY), ORAL
     Route: 048
     Dates: start: 20030901
  2. ZOLOFT [Suspect]
     Indication: PANIC ATTACK
     Dosage: 50 MG (DAILY), ORAL
     Route: 048
     Dates: start: 20030901
  3. HYDROXYZINE HCL [Suspect]
     Indication: AGITATION
  4. HYDROXYZINE HCL [Suspect]
     Indication: ILL-DEFINED DISORDER
  5. HYDROXYZINE HCL [Suspect]
     Indication: NERVOUSNESS
  6. ATENOLOL [Concomitant]
  7. ALPRAZOLAM [Suspect]
     Indication: AGITATION
     Dates: start: 20030901, end: 20031201
  8. ALPRAZOLAM [Suspect]
     Indication: HYPERHIDROSIS
     Dates: start: 20030901, end: 20031201
  9. ALPRAZOLAM [Suspect]
     Indication: MUSCLE TWITCHING
     Dates: start: 20030901, end: 20031201
  10. ALPRAZOLAM [Suspect]
     Indication: NERVOUSNESS
     Dates: start: 20030901, end: 20031201
  11. ALPRAZOLAM [Suspect]
     Indication: TREMOR
     Dates: start: 20030901, end: 20031201
  12. LORAZEPAM [Suspect]
     Indication: AGITATION
     Dates: start: 20030901, end: 20031201
  13. LORAZEPAM [Suspect]
     Indication: HYPERHIDROSIS
     Dates: start: 20030901, end: 20031201
  14. LORAZEPAM [Suspect]
     Indication: MUSCLE TWITCHING
     Dates: start: 20030901, end: 20031201
  15. LORAZEPAM [Suspect]
     Indication: NERVOUSNESS
     Dates: start: 20030901, end: 20031201
  16. LORAZEPAM [Suspect]
     Indication: TREMOR
     Dates: start: 20030901, end: 20031201

REACTIONS (11)
  - ACCOMMODATION DISORDER [None]
  - AGITATION [None]
  - DEPRESSED MOOD [None]
  - DIARRHOEA [None]
  - DYSKINESIA [None]
  - EMOTIONAL DISTRESS [None]
  - HYPERHIDROSIS [None]
  - MUSCLE TWITCHING [None]
  - NERVOUSNESS [None]
  - TREMOR [None]
  - VISION BLURRED [None]
